FAERS Safety Report 23915418 (Version 1)
Quarter: 2024Q2

REPORT INFORMATION
  Report Type: Spontaneous
  Country: US (occurrence: None)
  Receive Date: 20240529
  Receipt Date: 20240529
  Transmission Date: 20240716
  Serious: Yes (Hospitalization)
  Sender: FDA-Public Use
  Company Number: US-ROCHE-3569277

PATIENT
  Sex: Female

DRUGS (3)
  1. XOLAIR [Suspect]
     Active Substance: OMALIZUMAB
     Indication: Asthma
     Dosage: UNDER THE SKIN
     Route: 058
     Dates: start: 20231004
  2. TRAMADOL [Concomitant]
     Active Substance: TRAMADOL\TRAMADOL HYDROCHLORIDE
  3. APAP;TRAMADOL [Concomitant]
     Dosage: 375/325

REACTIONS (1)
  - Ocular vascular disorder [Recovered/Resolved]

NARRATIVE: CASE EVENT DATE: 20240501
